FAERS Safety Report 13449170 (Version 2)
Quarter: 2018Q3

REPORT INFORMATION
  Report Type: Spontaneous
  Country: US (occurrence: US)
  Receive Date: 20170417
  Receipt Date: 20180821
  Transmission Date: 20181010
  Serious: No
  Sender: FDA-Public Use
  Company Number: US-MANNKIND CORPORATION-2017MK000014

PATIENT
  Sex: Female
  Weight: 70.37 kg

DRUGS (3)
  1. AFREZZA [Suspect]
     Active Substance: INSULIN HUMAN
     Indication: TYPE 1 DIABETES MELLITUS
     Dates: start: 201611
  2. AFREZZA [Suspect]
     Active Substance: INSULIN HUMAN
     Dates: start: 201611
  3. AFREZZA [Suspect]
     Active Substance: INSULIN HUMAN

REACTIONS (4)
  - Visual impairment [Unknown]
  - Blood glucose decreased [Not Recovered/Not Resolved]
  - Blood glucose increased [Unknown]
  - Product physical issue [Unknown]
